FAERS Safety Report 25073008 (Version 1)
Quarter: 2025Q1

REPORT INFORMATION
  Report Type: Spontaneous
  Country: US (occurrence: US)
  Receive Date: 20250313
  Receipt Date: 20250313
  Transmission Date: 20250408
  Serious: Yes (Other)
  Sender: TEVA
  Company Number: US-TEVA-VS-3308182

PATIENT
  Age: 70 Year
  Sex: Female

DRUGS (1)
  1. IVERMECTIN [Suspect]
     Active Substance: IVERMECTIN
     Indication: Inflammation
     Route: 061
     Dates: start: 2021

REACTIONS (4)
  - Disease progression [Unknown]
  - Product odour abnormal [Unknown]
  - Drug ineffective [Unknown]
  - Erythema [Unknown]
